FAERS Safety Report 8029723-2 (Version None)
Quarter: 2012Q1

REPORT INFORMATION
  Report Type: 
  Country: None (occurrence: None)
  Receive Date: 20120109
  Receipt Date: 20111230
  Transmission Date: 20120608
  Serious: Yes (Hospitalization, Other)
  Sender: FDA-Public Use
  Company Number: US-BAYER-2012-001294

PATIENT
  Age: 43 Year
  Sex: Female
  Weight: 73 kg

DRUGS (13)
  1. MAXALT [Concomitant]
  2. NEXIUM [Concomitant]
  3. DEXAMETHASONE [Concomitant]
  4. TRIMETHOPRIM [Concomitant]
  5. YASMIN [Suspect]
     Dosage: UNK
     Dates: start: 20050418, end: 20080710
  6. PROZAC [Concomitant]
  7. VISTARIL [Concomitant]
  8. XANAX [Concomitant]
  9. VESICARE [Concomitant]
  10. ZANAFLEX [Concomitant]
  11. DROSPIRENONE AND ETHINYL ESTRADIOL [Suspect]
     Dosage: UNK
     Dates: start: 20080711, end: 20091020
  12. ZYRTEC [Concomitant]
  13. SOMA [Concomitant]

REACTIONS (1)
  - PULMONARY EMBOLISM [None]
